FAERS Safety Report 24946949 (Version 1)
Quarter: 2025Q1

REPORT INFORMATION
  Report Type: Spontaneous
  Country: FR (occurrence: FR)
  Receive Date: 20250210
  Receipt Date: 20250210
  Transmission Date: 20250409
  Serious: Yes (Disabling)
  Sender: AUROBINDO
  Company Number: FR-AFSSAPS-MP2025000124

PATIENT
  Age: 30 Year
  Sex: Female

DRUGS (3)
  1. ARIPIPRAZOLE [Suspect]
     Active Substance: ARIPIPRAZOLE
     Indication: Mental disorder
     Dosage: 10 MILLIGRAM, ONCE A DAY
     Route: 048
     Dates: start: 20200127, end: 20230325
  2. ARIPIPRAZOLE [Suspect]
     Active Substance: ARIPIPRAZOLE
     Dosage: 5 MILLIGRAM, ONCE A DAY
     Route: 048
     Dates: start: 20230326, end: 20241212
  3. ARIPIPRAZOLE [Suspect]
     Active Substance: ARIPIPRAZOLE
     Dosage: 4 MILLIGRAM, ONCE A DAY
     Route: 048
     Dates: start: 20241213

REACTIONS (2)
  - Tooth avulsion [Recovered/Resolved with Sequelae]
  - Dental caries [Recovered/Resolved with Sequelae]

NARRATIVE: CASE EVENT DATE: 20230101
